FAERS Safety Report 5099256-4 (Version None)
Quarter: 2006Q3

REPORT INFORMATION
  Report Type: 
  Country: None (occurrence: None)
  Receive Date: 20060731
  Receipt Date: 20050811
  Transmission Date: 20061208
  Serious: Yes (Other)
  Sender: FDA-Public Use
  Company Number: US-2005-009351

PATIENT

DRUGS (1)
  1. MAGNEVIST [Suspect]
     Dosage: 1 DOSE
     Dates: start: 20050513, end: 20050513

REACTIONS (4)
  - ABDOMINAL PAIN [None]
  - CHEST DISCOMFORT [None]
  - FLUSHING [None]
  - SNEEZING [None]
